FAERS Safety Report 13676188 (Version 2)
Quarter: 2017Q3

REPORT INFORMATION
  Report Type: Report from Study
  Country: GB (occurrence: GB)
  Receive Date: 20170622
  Receipt Date: 20170718
  Transmission Date: 20171127
  Serious: Yes (Death, Congenital Anomaly, Other)
  Sender: FDA-Public Use
  Company Number: GB-ALVOGEN-2017-ALVOGEN-092436

PATIENT

DRUGS (2)
  1. NEVIRAPINE. [Suspect]
     Active Substance: NEVIRAPINE
     Indication: PRODUCT USED FOR UNKNOWN INDICATION
     Dosage: 400
     Route: 048
  2. EMTRICITABINE/TENOFOVIR DISOPROXIL FUMARATE [Suspect]
     Active Substance: EMTRICITABINE\TENOFOVIR DISOPROXIL FUMARATE
     Indication: PRODUCT USED FOR UNKNOWN INDICATION
     Dosage: 1
     Route: 048

REACTIONS (3)
  - Renal dysplasia [Fatal]
  - Foetal exposure during pregnancy [Unknown]
  - Bladder agenesis [Fatal]
